FAERS Safety Report 25232807 (Version 2)
Quarter: 2025Q2

REPORT INFORMATION
  Report Type: Spontaneous
  Country: KR (occurrence: KR)
  Receive Date: 20250424
  Receipt Date: 20250519
  Transmission Date: 20250716
  Serious: Yes (Other)
  Sender: GLENMARK
  Company Number: KR-GLENMARK PHARMACEUTICALS-2025GMK099685

PATIENT
  Sex: Female
  Weight: 67 kg

DRUGS (6)
  1. RYALTRIS [Suspect]
     Active Substance: MOMETASONE FUROATE MONOHYDRATE\OLOPATADINE HYDROCHLORIDE
     Indication: Seasonal allergy
     Dosage: 2 DOSAGE FORM, BID
     Route: 045
     Dates: start: 20241218, end: 20250122
  2. RYALTRIS [Suspect]
     Active Substance: MOMETASONE FUROATE MONOHYDRATE\OLOPATADINE HYDROCHLORIDE
  3. INCRUSE ELLIPTA [Concomitant]
     Active Substance: UMECLIDINIUM BROMIDE
     Indication: Asthma
     Dosage: 1 DOSAGE FORM, QD (1DOS,1TIMES PER DAY)
     Route: 048
     Dates: start: 20240702
  4. Synatura [Concomitant]
     Indication: Asthma
     Dosage: UNK, TID (KG,3TIMES PER DAY)
     Route: 048
     Dates: start: 20241218
  5. Lacticare hc [Concomitant]
     Indication: Urticaria
     Dosage: UNK, BID (RUB,2TIMES PER DAY)
     Route: 062
     Dates: start: 20211227
  6. SYMBICORT [Concomitant]
     Active Substance: BUDESONIDE\FORMOTEROL FUMARATE DIHYDRATE
     Indication: Asthma
     Dosage: 2 DOSAGE FORM, BID
     Route: 048
     Dates: start: 20130102

REACTIONS (1)
  - Pneumonia [Recovering/Resolving]

NARRATIVE: CASE EVENT DATE: 20250110
